FAERS Safety Report 9174980 (Version 1)
Quarter: 2013Q1

REPORT INFORMATION
  Report Type: Other
  Country: US (occurrence: US)
  Receive Date: 20130320
  Receipt Date: 20130320
  Transmission Date: 20140127
  Serious: Yes (Death)
  Sender: FDA-Public Use
  Company Number: US-SHIRE-ALL1-2013-01536

PATIENT
  Age: 40 Year
  Sex: Female

DRUGS (1)
  1. FOSRENOL [Suspect]
     Indication: HYPERPHOSPHATAEMIA
     Dosage: 1000 MG, OTHER (TWO , 500 MG TABLETS WITH EACH MEAL, FOR 6 A DAY)
     Route: 048

REACTIONS (1)
  - Death [Fatal]
